FAERS Safety Report 6040183-3 (Version None)
Quarter: 2009Q1

REPORT INFORMATION
  Report Type: 
  Country: None (occurrence: None)
  Receive Date: 20090116
  Receipt Date: 20080107
  Transmission Date: 20090719
  Serious: No
  Sender: FDA-Public Use
  Company Number: US-BRISTOL-MYERS SQUIBB COMPANY-14032486

PATIENT
  Age: 32 Year
  Sex: Female

DRUGS (2)
  1. ABILIFY [Suspect]
     Dosage: STARTED ON 5MG INCREASED TO 10MG, 15MG TO 20MG DAILY.
  2. LEXAPRO [Concomitant]

REACTIONS (1)
  - VISION BLURRED [None]
